FAERS Safety Report 8167848 (Version 3)
Quarter: 2012Q4

REPORT INFORMATION
  Report Type: 
  Country: US (occurrence: US)
  Receive Date: 20111004
  Receipt Date: 20120903
  Transmission Date: 20130627
  Serious: Yes (Hospitalization)
  Sender: FDA-Public Use
  Company Number: US-BAYER-2011-090832

PATIENT
  Age: 33 Year
  Sex: Female
  Weight: 68.03 kg

DRUGS (6)
  1. YAZ [Suspect]
     Indication: PREMENSTRUAL SYNDROME
     Dosage: UNK
     Route: 048
     Dates: start: 2005, end: 2008
  2. YAZ [Suspect]
     Indication: ACNE
     Dosage: UNK
     Route: 048
     Dates: start: 2007, end: 2011
  3. YAZ [Suspect]
     Indication: CONTRACEPTION
  4. THYROID PREPARATIONS [Concomitant]
  5. SYNTHROID [Concomitant]
     Route: 048
  6. LUNESTA [Concomitant]
     Route: 048

REACTIONS (9)
  - Gallbladder disorder [None]
  - Cholecystitis [None]
  - Injury [None]
  - Anxiety [None]
  - Abdominal pain [None]
  - Nausea [None]
  - Vomiting [None]
  - Procedural pain [None]
  - Emotional distress [None]
